FAERS Safety Report 11719709 (Version 1)
Quarter: 2015Q4

REPORT INFORMATION
  Report Type: Report from Study
  Country: GE (occurrence: GE)
  Receive Date: 20151110
  Receipt Date: 20151110
  Transmission Date: 20160304
  Serious: Yes (Other)
  Sender: FDA-Public Use
  Company Number: GE-GILEAD-2015-0180632

PATIENT
  Age: 50 Year
  Sex: Male

DRUGS (3)
  1. SOFOSBUVIR [Suspect]
     Active Substance: SOFOSBUVIR
     Indication: CHRONIC HEPATITIS C
     Dosage: 400 MG, UNK
     Route: 048
     Dates: start: 20150622, end: 20150714
  2. INTERFERON [Suspect]
     Active Substance: INTERFERON
     Indication: CHRONIC HEPATITIS C
     Dosage: 180 MG, UNK
     Route: 065
     Dates: start: 20150622, end: 20150714
  3. RIBAVARIN [Suspect]
     Active Substance: RIBAVIRIN
     Indication: CHRONIC HEPATITIS C
     Dosage: 200 MG, UNK
     Route: 048
     Dates: start: 20150622, end: 20150714

REACTIONS (1)
  - Subarachnoid haemorrhage [Unknown]
